FAERS Safety Report 14922358 (Version 1)
Quarter: 2018Q2

REPORT INFORMATION
  Report Type: Spontaneous
  Country: US (occurrence: US)
  Receive Date: 20180502
  Receipt Date: 20180502
  Transmission Date: 20180711
  Serious: Yes (Other)
  Sender: FDA-Public Use
  Company Number: None

PATIENT
  Age: 21 Year
  Sex: Female
  Weight: 55.34 kg

DRUGS (1)
  1. MIRENA [Suspect]
     Active Substance: LEVONORGESTREL
     Indication: INFERTILITY

REACTIONS (4)
  - Pain [None]
  - Vaginal odour [None]
  - Device dislocation [None]
  - Vaginal infection [None]

NARRATIVE: CASE EVENT DATE: 20150715
